FAERS Safety Report 5451933-9 (Version None)
Quarter: 2007Q3

REPORT INFORMATION
  Report Type: 
  Country: None (occurrence: None)
  Receive Date: 20070912
  Receipt Date: 20070903
  Transmission Date: 20080115
  Serious: Yes (Death, Hospitalization)
  Sender: FDA-Public Use
  Company Number: 2007SP017409

PATIENT
  Age: 60 Year
  Sex: Male

DRUGS (6)
  1. PEG-INTRON [Suspect]
     Indication: HEPATITIS C
     Dosage: 120 MCG;QW;SC
     Route: 058
     Dates: start: 20060101, end: 20061001
  2. COPEGUS [Suspect]
     Indication: HEPATITIS C
     Dosage: 1000 MG;QD;PO
     Route: 048
     Dates: start: 20060101, end: 20061001
  3. CARDURA [Concomitant]
  4. NORVASC [Concomitant]
  5. VALPRESSION [Concomitant]
  6. ASACOL [Concomitant]

REACTIONS (19)
  - ACUTE RESPIRATORY DISTRESS SYNDROME [None]
  - ANGIOPATHY [None]
  - ANGIOSCLEROSIS [None]
  - ANXIETY [None]
  - AORTIC THROMBOSIS [None]
  - ASTHENIA [None]
  - CEREBROVASCULAR DISORDER [None]
  - CIRCADIAN RHYTHM SLEEP DISORDER [None]
  - CORONARY ARTERY DISEASE [None]
  - CYANOSIS [None]
  - DIFFUSE ALVEOLAR DAMAGE [None]
  - DRY GANGRENE [None]
  - HEPATIC STEATOSIS [None]
  - INTERSTITIAL LUNG DISEASE [None]
  - MYALGIA [None]
  - NERVOUSNESS [None]
  - PULMONARY EMBOLISM [None]
  - PULMONARY FIBROSIS [None]
  - PYREXIA [None]
